FAERS Safety Report 6987770-3 (Version None)
Quarter: 2010Q3

REPORT INFORMATION
  Report Type: 
  Country: None (occurrence: None)
  Receive Date: 20100914
  Receipt Date: 20100901
  Transmission Date: 20110219
  Serious: Yes (Hospitalization)
  Sender: FDA-Public Use
  Company Number: IDR-00416

PATIENT
  Age: 59 Year
  Sex: Female

DRUGS (9)
  1. PROPRANOLOL [Suspect]
     Dosage: 160 MG ORAL FORMULATION: CAPSULE
     Route: 048
     Dates: end: 20100529
  2. EPIRUBICIN [Suspect]
     Dosage: ONE SINGLE DOSE INTRAVENOUS (NOT OTHERWISE SPECIFIED) FORMULATION: INJECTI
     Route: 042
     Dates: start: 20100526, end: 20100526
  3. ALDACTONE [Concomitant]
  4. LASIX [Concomitant]
  5. SUCRALFATE [Concomitant]
  6. DIAMICRON (GLICLAZIDE) [Concomitant]
  7. ACTOS [Concomitant]
  8. POTASSIUM CHLORIDE [Concomitant]
  9. ANTIBIOTICS (ANTIBIOTICS) [Concomitant]

REACTIONS (8)
  - APLASIA [None]
  - CARDIAC ARREST [None]
  - CONVULSION [None]
  - DIARRHOEA [None]
  - ELECTROCARDIOGRAM QT PROLONGED [None]
  - HEPATITIS TOXIC [None]
  - LOSS OF CONSCIOUSNESS [None]
  - TORSADE DE POINTES [None]
